FAERS Safety Report 7460684-0 (Version None)
Quarter: 2011Q2

REPORT INFORMATION
  Report Type: 
  Country: None (occurrence: None)
  Receive Date: 20110505
  Receipt Date: 20110503
  Transmission Date: 20111010
  Serious: Yes (Other)
  Sender: FDA-Public Use
  Company Number: US-ABBOTT-11P-163-0723150-00

PATIENT
  Age: 28 Year
  Sex: Female
  Weight: 77.18 kg

DRUGS (2)
  1. HUMIRA [Suspect]
     Indication: PSORIATIC ARTHROPATHY
  2. HUMIRA [Suspect]
     Indication: PSORIASIS
     Dosage: STANDARD THERAPEUTIC DOSE FOR PLAQUE PSORIASIS
     Dates: start: 20110502, end: 20110502

REACTIONS (3)
  - VOMITING [None]
  - RASH GENERALISED [None]
  - THROAT TIGHTNESS [None]
